FAERS Safety Report 8860292 (Version 4)
Quarter: 2012Q4

REPORT INFORMATION
  Report Type: 
  Country: US (occurrence: US)
  Receive Date: 20121025
  Receipt Date: 20121227
  Transmission Date: 20130627
  Serious: No
  Sender: FDA-Public Use
  Company Number: US-PFIZER INC-2012263997

PATIENT
  Sex: Female

DRUGS (4)
  1. CELEBREX [Suspect]
     Dosage: 200 mg, daily
  2. OXYCODONE HYDROCHLORIDE [Suspect]
     Dosage: daily
  3. LOVENOX [Suspect]
     Dosage: 40 mg, daily
  4. FERROUS SULFATE [Suspect]
     Dosage: 325 mg, daily

REACTIONS (4)
  - Dizziness [Recovered/Resolved]
  - Nausea [Recovered/Resolved]
  - Vomiting [Recovered/Resolved]
  - Fatigue [Recovered/Resolved]
